FAERS Safety Report 12395326 (Version 2)
Quarter: 2017Q1

REPORT INFORMATION
  Report Type: Report from Study
  Country: US (occurrence: US)
  Receive Date: 20160523
  Receipt Date: 20170301
  Transmission Date: 20170428
  Serious: Yes (Congenital Anomaly)
  Sender: FDA-Public Use
  Company Number: US-AMAG PHARMACEUTICALS, INC.-AMAG201600879

PATIENT

DRUGS (1)
  1. MAKENA [Suspect]
     Active Substance: HYDROXYPROGESTERONE CAPROATE
     Indication: EXPOSURE DURING PREGNANCY
     Dosage: UNK
     Route: 065

REACTIONS (2)
  - Cleft palate [Unknown]
  - Cleft lip [Unknown]

NARRATIVE: CASE EVENT DATE: 2016
